FAERS Safety Report 5455961-9 (Version None)
Quarter: 2007Q3

REPORT INFORMATION
  Report Type: 
  Country: None (occurrence: None)
  Receive Date: 20070914
  Receipt Date: 20070908
  Transmission Date: 20080115
  Serious: Yes (Other)
  Sender: FDA-Public Use
  Company Number: CHPA2007US09487

PATIENT
  Age: 35 Year
  Sex: Female
  Weight: 90.7 kg

DRUGS (2)
  1. MAALOX ANTIACID/ANTIGAS MAX STR MULTI SYMPTOM (NCH)(MAGNESIUM HYDROXID [Suspect]
     Indication: STOMACH DISCOMFORT
     Dosage: 3 TSP, ONCE/SINGLE, ORAL
     Route: 048
     Dates: start: 20070908, end: 20070908
  2. ALBUTEROL [Concomitant]

REACTIONS (1)
  - HYPOAESTHESIA ORAL [None]
